FAERS Safety Report 7482843-3 (Version None)
Quarter: 2011Q2

REPORT INFORMATION
  Report Type: 
  Country: None (occurrence: None)
  Receive Date: 20110516
  Receipt Date: 20110412
  Transmission Date: 20111010
  Serious: Yes (Life-Threatening, Hospitalization)
  Sender: FDA-Public Use
  Company Number: PHHY2011CA31042

PATIENT
  Sex: Male

DRUGS (9)
  1. BENYLIN [Concomitant]
     Dosage: UNK
     Dates: start: 20101129
  2. OXALIPLATIN [Suspect]
     Dosage: 85 MG/M2,
     Route: 042
     Dates: start: 20101214
  3. LEUCOVORIN CALCIUM [Suspect]
     Route: 042
     Dates: start: 20101214
  4. VFGFR1 [Suspect]
     Indication: COLORECTAL CANCER METASTATIC
     Dosage: 15 MG/KG, UNK
     Route: 042
     Dates: start: 20101214
  5. CALCIUM W/MAGNESIUM [Concomitant]
     Dosage: UNK
  6. FLUOROURACIL [Suspect]
     Indication: COLORECTAL CANCER METASTATIC
     Dosage: 400 MG/M2, ON DAY 1 AND 2400 MG/M2 (4056 MG/M2) OVER NEXT 46 HOURS
     Route: 042
     Dates: start: 20101214
  7. RABEPRAZOLE SODIUM [Concomitant]
  8. METFORMIN HCL [Concomitant]
     Dosage: UNK
     Dates: start: 20101206
  9. DIAMICRON [Concomitant]
     Dates: start: 20101206

REACTIONS (4)
  - VOMITING [None]
  - DEHYDRATION [None]
  - NAUSEA [None]
  - DIABETIC KETOACIDOSIS [None]
